FAERS Safety Report 13963368 (Version 1)
Quarter: 2017Q3

REPORT INFORMATION
  Report Type: Spontaneous
  Country: JP (occurrence: JP)
  Receive Date: 20170913
  Receipt Date: 20170913
  Transmission Date: 20171128
  Serious: Yes (Hospitalization, Other)
  Sender: FDA-Public Use
  Company Number: JP-IPCA LABORATORIES LIMITED-IPC-2017-JP-002861

PATIENT
  Age: 30 Year
  Sex: Male

DRUGS (9)
  1. WARFARIN [Suspect]
     Active Substance: WARFARIN
     Dosage: 25 MG, UNK
     Route: 048
  2. WARFARIN [Suspect]
     Active Substance: WARFARIN
     Dosage: 3 MG, QD
     Route: 048
  3. WARFARIN [Suspect]
     Active Substance: WARFARIN
     Dosage: 5 MG, QD
  4. WARFARIN [Suspect]
     Active Substance: WARFARIN
     Indication: ANTICOAGULANT THERAPY
     Dosage: 2 MG, UNK
  5. ASPIRIN. [Concomitant]
     Active Substance: ASPIRIN
     Indication: ANTIPLATELET THERAPY
     Dosage: 100 MG, QD
  6. WARFARIN [Suspect]
     Active Substance: WARFARIN
     Dosage: 10 MG, UNK
     Route: 048
  7. HEPARIN [Concomitant]
     Active Substance: HEPARIN SODIUM
     Indication: ANTICOAGULANT THERAPY
     Route: 042
  8. DABIGATRAN ETEXILATE [Concomitant]
     Active Substance: DABIGATRAN ETEXILATE
     Indication: ANTICOAGULANT THERAPY
     Dosage: 150 MG, BID
  9. BUCOLOME [Concomitant]
     Active Substance: BUCOLOME
     Indication: PRODUCT USED FOR UNKNOWN INDICATION
     Dosage: 600 MG, UNK

REACTIONS (1)
  - Drug resistance [Unknown]
